FAERS Safety Report 5873240-2 (Version None)
Quarter: 2008Q3

REPORT INFORMATION
  Report Type: 
  Country: None (occurrence: None)
  Receive Date: 20080905
  Receipt Date: 20080905
  Transmission Date: 20090109
  Serious: Yes (Other)
  Sender: FDA-Public Use
  Company Number: None

PATIENT
  Sex: Female
  Weight: 61.6892 kg

DRUGS (1)
  1. LAMICTAL [Suspect]
     Indication: EPILEPSY
     Dosage: 200MG ONE BID ORAL
     Route: 048
     Dates: start: 20080721

REACTIONS (2)
  - CONVULSION [None]
  - LOSS OF CONSCIOUSNESS [None]
